FAERS Safety Report 8351577-5 (Version None)
Quarter: 2012Q2

REPORT INFORMATION
  Report Type: 
  Country: None (occurrence: None)
  Receive Date: 20120511
  Receipt Date: 20120427
  Transmission Date: 20120825
  Serious: Yes (Other)
  Sender: FDA-Public Use
  Company Number: JP-BIOGENIDEC-2012BI008878

PATIENT
  Sex: Male

DRUGS (9)
  1. STEROIDS [Concomitant]
  2. MAGNESIUM SULFATE [Concomitant]
  3. GASCON [Concomitant]
  4. JUVELA N [Concomitant]
  5. ALENDRONATE SODIUM [Concomitant]
  6. AVONEX [Suspect]
     Indication: MULTIPLE SCLEROSIS
     Route: 030
     Dates: start: 20101209, end: 20111201
  7. BASEN OD [Concomitant]
  8. FAMOTIDINE [Concomitant]
  9. WARFARIN SODIUM [Concomitant]

REACTIONS (5)
  - SKIN ULCER [None]
  - CHRONIC INFLAMMATORY DEMYELINATING POLYRADICULONEUROPATHY [None]
  - INJECTION SITE INFECTION [None]
  - INJECTION SITE INDURATION [None]
  - INFECTED SKIN ULCER [None]
